FAERS Safety Report 10882070 (Version 1)
Quarter: 2015Q1

REPORT INFORMATION
  Report Type: Report from Study
  Country: TN (occurrence: TN)
  Receive Date: 20150303
  Receipt Date: 20150303
  Transmission Date: 20150721
  Serious: Yes (Death)
  Sender: FDA-Public Use
  Company Number: TN-BAXTER-2015BAX010388

PATIENT
  Age: 82 Year
  Sex: Male

DRUGS (1)
  1. METRONIDAZOLE 0.5% [Suspect]
     Active Substance: METRONIDAZOLE
     Indication: LIVER ABSCESS
     Route: 042

REACTIONS (1)
  - Septic shock [Fatal]
